FAERS Safety Report 13898038 (Version 1)
Quarter: 2017Q3

REPORT INFORMATION
  Report Type: Spontaneous
  Country: US (occurrence: None)
  Receive Date: 20170823
  Receipt Date: 20170823
  Transmission Date: 20171127
  Serious: Yes (Hospitalization)
  Sender: FDA-Public Use
  Company Number: None

PATIENT
  Age: 74 Year
  Sex: Female
  Weight: 73.5 kg

DRUGS (3)
  1. METFORMIN HYDROCHLORIDE. [Suspect]
     Active Substance: METFORMIN HYDROCHLORIDE
     Dates: end: 20170811
  2. CARBOPLATIN. [Suspect]
     Active Substance: CARBOPLATIN
     Dates: end: 20170808
  3. TAXOL [Suspect]
     Active Substance: PACLITAXEL
     Dates: end: 20170808

REACTIONS (8)
  - Vomiting [None]
  - Fatigue [None]
  - Hyponatraemia [None]
  - Pneumothorax [None]
  - Nausea [None]
  - Pleural effusion [None]
  - Dyspnoea [None]
  - Hypovolaemia [None]

NARRATIVE: CASE EVENT DATE: 20170811
